FAERS Safety Report 8863129 (Version 1)
Quarter: 2012Q4

REPORT INFORMATION
  Report Type: 
  Country: ES (occurrence: ES)
  Receive Date: 20121026
  Receipt Date: 20121026
  Transmission Date: 20130627
  Serious: Yes (Hospitalization)
  Sender: FDA-Public Use
  Company Number: ES-JNJFOC-20121009827

PATIENT
  Age: 81 Year
  Sex: Male

DRUGS (4)
  1. DUROGESIC [Suspect]
     Indication: PAIN
     Route: 062
     Dates: start: 20120210, end: 20120217
  2. DUROGESIC [Suspect]
     Indication: PAIN
     Route: 062
     Dates: start: 201201, end: 20120210
  3. ALPRAZOLAM [Interacting]
     Indication: INSOMNIA
     Route: 048
     Dates: end: 20120217
  4. ACTIQ [Concomitant]
     Indication: PAIN
     Route: 048
     Dates: start: 201202

REACTIONS (4)
  - Depressed level of consciousness [Recovered/Resolved with Sequelae]
  - Drug interaction [Recovered/Resolved]
  - Pain [Unknown]
  - Inappropriate schedule of drug administration [Recovered/Resolved]
